FAERS Safety Report 6331614-X (Version None)
Quarter: 2009Q3

REPORT INFORMATION
  Report Type: 
  Country: None (occurrence: None)
  Receive Date: 20090827
  Receipt Date: 20090819
  Transmission Date: 20100115
  Serious: Yes (Other)
  Sender: FDA-Public Use
  Company Number: PHHY2009MX24627

PATIENT
  Age: 75 Year
  Sex: Female

DRUGS (3)
  1. ACLASTA [Suspect]
     Indication: OSTEOPOROSIS
     Dosage: 1 INJECTION 5 MG/100 ML PER DAY
     Route: 042
     Dates: start: 20090204
  2. DIOVAN [Suspect]
     Indication: HYPERTENSION
     Dosage: 160 MG, QD
     Route: 048
     Dates: start: 20030101
  3. VERAPAMIL [Concomitant]
     Indication: HYPERTENSION
     Dosage: HALF TABLET PER DAY

REACTIONS (5)
  - ARTHRALGIA [None]
  - BONE PAIN [None]
  - CEREBRAL INFARCTION [None]
  - HEADACHE [None]
  - SYNCOPE [None]
